FAERS Safety Report 5660319-3 (Version None)
Quarter: 2008Q1

REPORT INFORMATION
  Report Type: 
  Country: None (occurrence: None)
  Receive Date: 20080214
  Receipt Date: 20071127
  Transmission Date: 20080703
  Serious: Yes (Hospitalization)
  Sender: FDA-Public Use
  Company Number: WAES 0711USA05003

PATIENT
  Age: 55 Year
  Sex: Male

DRUGS (3)
  1. ISENTRESS [Suspect]
     Indication: HIV INFECTION
     Dosage: PO
     Route: 048
     Dates: start: 20071108
  2. BACTRIM [Concomitant]
  3. NORVASC [Concomitant]

REACTIONS (1)
  - BLOOD CREATININE INCREASED [None]
